FAERS Safety Report 12988238 (Version 1)
Quarter: 2016Q4

REPORT INFORMATION
  Report Type: Spontaneous
  Country: BR (occurrence: BR)
  Receive Date: 20161130
  Receipt Date: 20161130
  Transmission Date: 20170207
  Serious: Yes (Other)
  Sender: FDA-Public Use
  Company Number: PHHY2016BR160517

PATIENT
  Sex: Female

DRUGS (2)
  1. SIMVASTATIN. [Suspect]
     Active Substance: SIMVASTATIN
     Indication: PRODUCT USED FOR UNKNOWN INDICATION
     Route: 065
  2. SERTRALINE [Concomitant]
     Active Substance: SERTRALINE HYDROCHLORIDE
     Indication: PRODUCT USED FOR UNKNOWN INDICATION
     Route: 065

REACTIONS (13)
  - Vision blurred [Recovering/Resolving]
  - Nausea [Recovering/Resolving]
  - Head banging [Recovering/Resolving]
  - Joint injury [Recovering/Resolving]
  - Libido decreased [Recovering/Resolving]
  - Syncope [Recovering/Resolving]
  - Alopecia [Recovering/Resolving]
  - Inadequate lubrication [Recovering/Resolving]
  - Seizure [Recovering/Resolving]
  - Musculoskeletal chest pain [Recovering/Resolving]
  - Fall [Recovering/Resolving]
  - Muscular weakness [Recovering/Resolving]
  - Insomnia [Recovering/Resolving]
